FAERS Safety Report 4326332-3 (Version None)
Quarter: 2004Q1

REPORT INFORMATION
  Report Type: 
  Country: None (occurrence: None)
  Receive Date: 20040323
  Receipt Date: 20040309
  Transmission Date: 20041129
  Serious: Yes (Other)
  Sender: FDA-Public Use
  Company Number: US-JNJFOC-20031204132

PATIENT
  Age: 49 Year
  Sex: Female

DRUGS (6)
  1. REMICADE [Suspect]
     Indication: PSORIATIC ARTHROPATHY
     Dosage: 400 MG, 1 IN 8 WEEK, INTRAVENOUS
     Route: 042
     Dates: start: 20010523, end: 20030820
  2. METHOTREXATE SODIUM [Concomitant]
  3. CELECOXIB (CELECOXIB)C [Concomitant]
  4. FOLATE (FOLATE SODIUM) [Concomitant]
  5. PREDNISONE [Concomitant]
  6. NSAID (NSAID'S) [Concomitant]

REACTIONS (7)
  - CONDITION AGGRAVATED [None]
  - DISEASE PROGRESSION [None]
  - DYSPHAGIA [None]
  - LYMPHADENOPATHY [None]
  - NON-HODGKIN'S LYMPHOMA [None]
  - RHEUMATOID ARTHRITIS [None]
  - SUBCUTANEOUS NODULE [None]
